FAERS Safety Report 20566401 (Version 1)
Quarter: 2022Q1

REPORT INFORMATION
  Report Type: Spontaneous
  Country: PL (occurrence: PL)
  Receive Date: 20220308
  Receipt Date: 20220308
  Transmission Date: 20220423
  Serious: Yes (Death)
  Sender: FDA-Public Use
  Company Number: None

PATIENT
  Age: 61 Year
  Sex: Male
  Weight: 110 kg

DRUGS (1)
  1. ALTEPLASE [Suspect]
     Active Substance: ALTEPLASE
     Indication: Cerebral infarction
     Dosage: BOLUS 9MG AND 81 MG INTRAVENOUS INFUSION WITHIN HOUR.
     Route: 065
     Dates: start: 20220114, end: 20220114

REACTIONS (5)
  - Tongue oedema [Fatal]
  - Pharyngeal oedema [Fatal]
  - Laryngeal oedema [Fatal]
  - Cardiac arrest [Fatal]
  - Respiratory arrest [Fatal]

NARRATIVE: CASE EVENT DATE: 20220114
